FAERS Safety Report 7767379-4 (Version None)
Quarter: 2011Q3

REPORT INFORMATION
  Report Type: 
  Country: None (occurrence: None)
  Receive Date: 20110922
  Receipt Date: 20100825
  Transmission Date: 20111222
  Serious: No
  Sender: FDA-Public Use
  Company Number: US-ASTRAZENECA-2009UW17296

PATIENT
  Sex: Male
  Weight: 72.1 kg

DRUGS (5)
  1. SEROQUEL [Suspect]
     Indication: BIPOLAR DISORDER
     Route: 048
     Dates: start: 20031101, end: 20071001
  2. SEROQUEL [Suspect]
     Route: 048
     Dates: start: 20050405, end: 20071001
  3. SEROQUEL [Suspect]
     Indication: DEPRESSION
     Route: 048
     Dates: start: 20031101, end: 20071001
  4. SEROQUEL [Suspect]
     Route: 048
     Dates: start: 20050405, end: 20071001
  5. ZYPREXA [Concomitant]
     Dates: start: 20050101, end: 20060101

REACTIONS (2)
  - DIABETES MELLITUS [None]
  - DIABETIC COMPLICATION [None]
